FAERS Safety Report 13906232 (Version 1)
Quarter: 2017Q3

REPORT INFORMATION
  Report Type: Spontaneous
  Country: US (occurrence: None)
  Receive Date: 20170825
  Receipt Date: 20170825
  Transmission Date: 20171127
  Serious: Yes (Other)
  Sender: FDA-Public Use
  Company Number: None

PATIENT
  Age: 85 Year
  Sex: Female
  Weight: 65.77 kg

DRUGS (7)
  1. BABY ASPIRIN [Concomitant]
     Active Substance: ASPIRIN
  2. ZOLEDRONIC ACID INJECTION [Suspect]
     Active Substance: ZOLEDRONIC ACID
     Indication: OSTEOPOROSIS
     Dates: start: 20170630
  3. TIMOPTIC [Concomitant]
     Active Substance: TIMOLOL MALEATE
  4. PANTOPRAZOLE SOD [Concomitant]
     Active Substance: PANTOPRAZOLE SODIUM
  5. TYLENOL [Concomitant]
     Active Substance: ACETAMINOPHEN
  6. EPLERENONE. [Concomitant]
     Active Substance: EPLERENONE
  7. LISINOPRIL. [Concomitant]
     Active Substance: LISINOPRIL

REACTIONS (6)
  - Depression [None]
  - Arthralgia [None]
  - Bone pain [None]
  - Headache [None]
  - Pain in extremity [None]
  - Back pain [None]

NARRATIVE: CASE EVENT DATE: 20170707
